FAERS Safety Report 21955782 (Version 1)
Quarter: 2023Q1

REPORT INFORMATION
  Report Type: Other
  Country: None (occurrence: SA)
  Receive Date: 20230206
  Receipt Date: 20230206
  Transmission Date: 20230417
  Serious: Yes (Death, Congenital Anomaly)
  Sender: FDA-Public Use
  Company Number: SA-Spectra Medical Devices, LLC-2137537

PATIENT
  Age: 32 Year
  Sex: Male
  Weight: 65 kg

DRUGS (6)
  1. LIDOCAINE HYDROCHLORIDE ANHYDROUS [Suspect]
     Active Substance: LIDOCAINE HYDROCHLORIDE ANHYDROUS
     Indication: Product used for unknown indication
     Route: 048
  2. ALCOHOL [Suspect]
     Active Substance: ALCOHOL
     Route: 065
  3. DRONABINOL [Suspect]
     Active Substance: DRONABINOL
     Route: 065
  4. AMPHETAMINE SULFATE [Suspect]
     Active Substance: AMPHETAMINE SULFATE
     Route: 065
  5. CATHINONE [Suspect]
     Active Substance: CATHINONE
     Route: 065
  6. CATHINE [Suspect]
     Active Substance: CATHINE
     Route: 065

REACTIONS (5)
  - Drug abuse [Fatal]
  - Cardio-respiratory arrest [Fatal]
  - Seizure [Fatal]
  - Toxicity to various agents [Fatal]
  - Intentional product misuse [Unknown]
